FAERS Safety Report 24246396 (Version 1)
Quarter: 2024Q3

REPORT INFORMATION
  Report Type: Spontaneous
  Country: RU (occurrence: RU)
  Receive Date: 20240825
  Receipt Date: 20240825
  Transmission Date: 20241016
  Serious: Yes (Other)
  Sender: GLENMARK
  Company Number: RU-GLENMARK PHARMACEUTICALS-2024GMK093420

PATIENT

DRUGS (1)
  1. RYALTRIS [Suspect]
     Active Substance: MOMETASONE FUROATE MONOHYDRATE\OLOPATADINE HYDROCHLORIDE
     Indication: Rhinitis allergic
     Dosage: 2 DOSAGE FORM (2 INSUFLATIONS IN EACH NASAL PASSAGE)
     Route: 045

REACTIONS (1)
  - Asphyxia [Recovering/Resolving]
